FAERS Safety Report 11479606 (Version 4)
Quarter: 2016Q4

REPORT INFORMATION
  Report Type: Report from Study
  Country: CA (occurrence: CA)
  Receive Date: 20150909
  Receipt Date: 20161202
  Transmission Date: 20170206
  Serious: Yes (Other)
  Sender: FDA-Public Use
  Company Number: CA-JAZZ-2015-CA-001986

PATIENT
  Age: 44 Year
  Sex: Male

DRUGS (8)
  1. XYREM [Suspect]
     Active Substance: SODIUM OXYBATE
     Dosage: 4.5 G, QD
     Route: 048
     Dates: start: 20150302
  2. XYREM [Suspect]
     Active Substance: SODIUM OXYBATE
     Dosage: 4.5 G, BID
     Route: 048
     Dates: start: 20151208
  3. XYREM [Suspect]
     Active Substance: SODIUM OXYBATE
     Dosage: TAKING JUST A LITTLE OVER 4 G
     Route: 048
     Dates: start: 2015
  4. XYREM [Suspect]
     Active Substance: SODIUM OXYBATE
     Dosage: 3 G, BID
     Route: 048
     Dates: start: 20150902
  5. XYREM [Suspect]
     Active Substance: SODIUM OXYBATE
     Indication: CATAPLEXY
     Dosage: 2.25 G, QD
     Route: 048
     Dates: start: 20150107
  6. XYREM [Suspect]
     Active Substance: SODIUM OXYBATE
     Dosage: 3.5 G, BID
     Route: 048
     Dates: start: 20150916
  7. XYREM [Suspect]
     Active Substance: SODIUM OXYBATE
     Dosage: 5.5 G, QD
     Route: 048
     Dates: start: 20150618
  8. XYREM [Suspect]
     Active Substance: SODIUM OXYBATE
     Dosage: SMALLER UNKNOWN DOSES
     Route: 048
     Dates: start: 20160402, end: 2016

REACTIONS (4)
  - Treatment noncompliance [Unknown]
  - Joint injury [Unknown]
  - Incorrect dose administered [Unknown]
  - Drug dose omission [Unknown]

NARRATIVE: CASE EVENT DATE: 201502
